FAERS Safety Report 22282669 (Version 1)
Quarter: 2023Q2

REPORT INFORMATION
  Report Type: Spontaneous
  Country: US (occurrence: US)
  Receive Date: 20230504
  Receipt Date: 20230504
  Transmission Date: 20230722
  Serious: No
  Sender: FDA-Public Use
  Company Number: US-TEVA-2023-US-2878577

PATIENT
  Age: 68 Year
  Sex: Female

DRUGS (1)
  1. TRAZODONE HYDROCHLORIDE [Suspect]
     Active Substance: TRAZODONE HYDROCHLORIDE
     Indication: Sleep disorder
     Dosage: TAKE 1-2 TABLETS AT BEDTIME, AS NEEDED
     Route: 065
     Dates: start: 20230406

REACTIONS (4)
  - Heart rate increased [Unknown]
  - Product prescribing issue [Unknown]
  - Drug ineffective [Unknown]
  - Fatigue [Unknown]

NARRATIVE: CASE EVENT DATE: 20230401
